FAERS Safety Report 17539323 (Version 1)
Quarter: 2020Q1

REPORT INFORMATION
  Report Type: Spontaneous
  Country: JP (occurrence: JP)
  Receive Date: 20200313
  Receipt Date: 20200313
  Transmission Date: 20200409
  Serious: Yes (Hospitalization)
  Sender: FDA-Public Use
  Company Number: JP-PFIZER INC-2020106538

PATIENT
  Age: 14 Year
  Sex: Female

DRUGS (1)
  1. METHYLPREDNISOLONE SODIUM SUCCINATE. [Suspect]
     Active Substance: METHYLPREDNISOLONE SODIUM SUCCINATE
     Indication: ENCEPHALOPATHY
     Dosage: UNK

REACTIONS (3)
  - Secondary adrenocortical insufficiency [Recovered/Resolved]
  - Product use in unapproved indication [Unknown]
  - Off label use [Unknown]
